FAERS Safety Report 18440006 (Version 1)
Quarter: 2020Q4

REPORT INFORMATION
  Report Type: Spontaneous
  Country: US (occurrence: US)
  Receive Date: 20201028
  Receipt Date: 20201028
  Transmission Date: 20210114
  Serious: No
  Sender: FDA-Public Use
  Company Number: None

PATIENT
  Age: 68 Year
  Sex: Female
  Weight: 72.59 kg

DRUGS (8)
  1. PERIDEX [Concomitant]
     Active Substance: CHLORHEXIDINE GLUCONATE
  2. ONDANSETRON HCL [Concomitant]
     Active Substance: ONDANSETRON HYDROCHLORIDE
  3. BRAFTOVI [Suspect]
     Active Substance: ENCORAFENIB
     Indication: RECTAL CANCER
     Route: 048
     Dates: start: 20191119, end: 20201028
  4. MEGACE ES [Concomitant]
     Active Substance: MEGESTROL ACETATE
  5. LOMOTIL [Concomitant]
     Active Substance: ATROPINE SULFATE\DIPHENOXYLATE HYDROCHLORIDE
  6. VECTIBIX [Concomitant]
     Active Substance: PANITUMUMAB
  7. MEKTOVI [Suspect]
     Active Substance: BINIMETINIB
     Indication: RECTAL CANCER
     Route: 048
     Dates: start: 20191119, end: 20201028
  8. POTASSIUM CHLORIDE CRYS ER [Concomitant]
     Active Substance: POTASSIUM CHLORIDE

REACTIONS (1)
  - Disease progression [None]

NARRATIVE: CASE EVENT DATE: 20201028
